FAERS Safety Report 17557123 (Version 1)
Quarter: 2020Q1

REPORT INFORMATION
  Report Type: Report from Study
  Country: SV (occurrence: SV)
  Receive Date: 20200318
  Receipt Date: 20200318
  Transmission Date: 20200409
  Serious: Yes (Other)
  Sender: FDA-Public Use
  Company Number: SV-ACTELION-A-NJ2020-203345

PATIENT
  Age: 43 Year
  Sex: Female

DRUGS (3)
  1. VENTAVIS [Suspect]
     Active Substance: ILOPROST
     Indication: PULMONARY ARTERIAL HYPERTENSION
     Dosage: 0.5 ML EVERY 3 HOURS; 6 DAILY NEBULIZATIONS
     Route: 055
     Dates: start: 20180108
  2. SILDENAFIL. [Concomitant]
     Active Substance: SILDENAFIL
  3. BOSENTAN. [Concomitant]
     Active Substance: BOSENTAN

REACTIONS (1)
  - Haematemesis [Recovered/Resolved]

NARRATIVE: CASE EVENT DATE: 20200308
